FAERS Safety Report 22262775 (Version 1)
Quarter: 2023Q2

REPORT INFORMATION
  Report Type: Other
  Country: FR (occurrence: FR)
  Receive Date: 20230428
  Receipt Date: 20230428
  Transmission Date: 20230721
  Serious: Yes (Life-Threatening)
  Sender: FDA-Public Use
  Company Number: None

PATIENT

DRUGS (16)
  1. TRAMADOL [Suspect]
     Active Substance: TRAMADOL
     Indication: Pain
     Dosage: 50 MILLIGRAM, QD
     Route: 048
     Dates: start: 20230210, end: 20230210
  2. CARBETOCIN [Suspect]
     Active Substance: CARBETOCIN
     Indication: Haemorrhage prophylaxis
     Dosage: 100 MICROGRAM, QD
     Route: 042
     Dates: start: 20230210, end: 20230210
  3. BRIDION [Suspect]
     Active Substance: SUGAMMADEX
     Indication: Neuromuscular blockade reversal
     Dosage: 600 MILLIGRAM, 1 TOTAL
     Route: 042
     Dates: start: 20230210, end: 20230210
  4. SUCCINYLCHOLINE CHLORIDE [Suspect]
     Active Substance: SUCCINYLCHOLINE CHLORIDE
     Indication: Induction of anaesthesia
     Dosage: 100 MILLIGRAM, QD
     Route: 065
     Dates: start: 20230210, end: 20230210
  5. CLINDAMYCIN HYDROCHLORIDE [Suspect]
     Active Substance: CLINDAMYCIN HYDROCHLORIDE
     Indication: Antibiotic prophylaxis
     Dosage: 900 MILLIGRAM, QD
     Route: 042
     Dates: start: 20230210, end: 20230210
  6. LOVENOX [Suspect]
     Active Substance: ENOXAPARIN SODIUM
     Indication: Thrombosis prophylaxis
     Dosage: 6000 INTERNATIONAL UNIT, QD
     Route: 058
     Dates: start: 20230210, end: 20230210
  7. PROPOFOL [Suspect]
     Active Substance: PROPOFOL
     Indication: Induction of anaesthesia
     Dosage: 400 MILLIGRAM, 1 TOTAL
     Route: 042
     Dates: start: 20230210, end: 20230210
  8. ROCURONIUM BROMIDE [Suspect]
     Active Substance: ROCURONIUM BROMIDE
     Indication: Induction of anaesthesia
     Dosage: 50 MILLIGRAM, 1 TOTAL
     Route: 042
     Dates: start: 20230210, end: 20230210
  9. LEVOBUPIVACAINE HYDROCHLORIDE [Suspect]
     Active Substance: LEVOBUPIVACAINE HYDROCHLORIDE
     Indication: Nerve block
     Dosage: 1,25 MG/ML
     Route: 008
     Dates: start: 20230209, end: 20230210
  10. KETOPROFEN [Suspect]
     Active Substance: KETOPROFEN
     Indication: Pain
     Dosage: 100 MILLIGRAM, QD
     Route: 042
     Dates: start: 20230210, end: 20230210
  11. NOREPINEPHRINE [Suspect]
     Active Substance: NOREPINEPHRINE
     Indication: Product used for unknown indication
     Dosage: 37 MICROGRAM
     Route: 042
     Dates: start: 20230210, end: 20230210
  12. SUFENTANIL CITRATE [Suspect]
     Active Substance: SUFENTANIL CITRATE
     Indication: Nerve block
     Dosage: 1 TOTAL
     Route: 008
     Dates: start: 20230209, end: 20230210
  13. SUFENTANIL [Suspect]
     Active Substance: SUFENTANIL
     Indication: Induction of anaesthesia
     Dosage: 20 MICROGRAM, 1 TOTAL
     Route: 042
     Dates: start: 20230210, end: 20230210
  14. XYLOCAINE [Suspect]
     Active Substance: LIDOCAINE HYDROCHLORIDE
     Indication: Nerve block
     Dosage: 400 MILLIGRAM, 1 TOTAL
     Route: 008
     Dates: start: 20230209, end: 20230210
  15. ACETAMINOPHEN [Concomitant]
     Active Substance: ACETAMINOPHEN
     Indication: Product used for unknown indication
     Dosage: UNK
     Route: 065
  16. PHLOROGLUCINOL\1,3,5-TRIMETHOXYBENZENE [Concomitant]
     Active Substance: PHLOROGLUCINOL\1,3,5-TRIMETHOXYBENZENE
     Indication: Product used for unknown indication
     Dosage: UNK
     Route: 065

REACTIONS (2)
  - Acute generalised exanthematous pustulosis [Recovering/Resolving]
  - Drug reaction with eosinophilia and systemic symptoms [Recovering/Resolving]

NARRATIVE: CASE EVENT DATE: 20230210
